FAERS Safety Report 4916534-7 (Version None)
Quarter: 2006Q1

REPORT INFORMATION
  Report Type: 
  Country: None (occurrence: None)
  Receive Date: 20060220
  Receipt Date: 20050831
  Transmission Date: 20060701
  Serious: Yes (Other)
  Sender: FDA-Public Use
  Company Number: PHNU2005DE03019

PATIENT
  Age: 52 Year
  Sex: Male

DRUGS (3)
  1. SORTIS [Concomitant]
     Indication: HYPERLIPIDAEMIA
  2. LAMISIL [Suspect]
     Indication: NAIL TINEA
     Dosage: 250 MG, QD
     Route: 048
     Dates: start: 20050730, end: 20050806
  3. METOPROLOL SUCCINATE [Suspect]

REACTIONS (4)
  - DEPRESSION [None]
  - DRUG INTERACTION [None]
  - NIGHT SWEATS [None]
  - RESTLESSNESS [None]
